FAERS Safety Report 14144842 (Version 1)
Quarter: 2017Q4

REPORT INFORMATION
  Report Type: Spontaneous
  Country: US (occurrence: US)
  Receive Date: 20171031
  Receipt Date: 20171031
  Transmission Date: 20180321
  Serious: No
  Sender: FDA-Public Use
  Company Number: US-SHIRE-US201722369

PATIENT

DRUGS (1)
  1. XIIDRA [Suspect]
     Active Substance: LIFITEGRAST
     Indication: PRODUCT USED FOR UNKNOWN INDICATION
     Dosage: 50 MG/1 ML

REACTIONS (6)
  - Instillation site pruritus [Recovered/Resolved]
  - Instillation site burn [Recovered/Resolved]
  - Instillation site reaction [Recovered/Resolved]
  - Product quality issue [Unknown]
  - Vision blurred [Recovered/Resolved]
  - Instillation site pain [Recovered/Resolved]
